FAERS Safety Report 23862981 (Version 2)
Quarter: 2024Q4

REPORT INFORMATION
  Report Type: Spontaneous
  Country: JP (occurrence: JP)
  Receive Date: 20240516
  Receipt Date: 20241218
  Transmission Date: 20250115
  Serious: Yes (Other)
  Sender: TEVA
  Company Number: JP-TEVA-VS-3198886

PATIENT
  Age: 74 Year
  Sex: Female

DRUGS (3)
  1. AZILECT [Suspect]
     Active Substance: RASAGILINE MESYLATE
     Indication: Product used for unknown indication
     Route: 065
  2. AZILECT [Suspect]
     Active Substance: RASAGILINE MESYLATE
     Indication: Product used for unknown indication
     Route: 065
  3. STALEVO [Suspect]
     Active Substance: CARBIDOPA\ENTACAPONE\LEVODOPA
     Indication: Product used for unknown indication
     Route: 065

REACTIONS (3)
  - Sudden onset of sleep [Recovered/Resolved]
  - Wrong technique in product usage process [Unknown]
  - Underdose [Unknown]
